FAERS Safety Report 12675834 (Version 1)
Quarter: 2016Q3

REPORT INFORMATION
  Report Type: Spontaneous
  Country: US (occurrence: US)
  Receive Date: 20160823
  Receipt Date: 20160823
  Transmission Date: 20161109
  Serious: No
  Sender: FDA-Public Use
  Company Number: US-JAZZ-2016-US-006764

PATIENT
  Age: 54 Year
  Sex: Female

DRUGS (8)
  1. METOPROLOL SUCCINATE. [Concomitant]
     Active Substance: METOPROLOL SUCCINATE
  2. KEPPRA [Concomitant]
     Active Substance: LEVETIRACETAM
  3. PROGESTERONE. [Concomitant]
     Active Substance: PROGESTERONE
  4. XYREM [Suspect]
     Active Substance: SODIUM OXYBATE
     Dosage: 3 G, BID
     Route: 048
     Dates: start: 201604
  5. ESTRADIOL. [Concomitant]
     Active Substance: ESTRADIOL
  6. XYREM [Suspect]
     Active Substance: SODIUM OXYBATE
     Indication: NARCOLEPSY
     Dosage: 2.25 G, BID
     Route: 048
     Dates: start: 201604, end: 201604
  7. ASPIRIN. [Concomitant]
     Active Substance: ASPIRIN
  8. AMANTADINE [Concomitant]
     Active Substance: AMANTADINE

REACTIONS (2)
  - Headache [Not Recovered/Not Resolved]
  - Somnolence [Recovered/Resolved]

NARRATIVE: CASE EVENT DATE: 201604
